FAERS Safety Report 25598219 (Version 2)
Quarter: 2025Q4

REPORT INFORMATION
  Report Type: Report from Study
  Country: EU (occurrence: EU)
  Receive Date: 20250723
  Receipt Date: 20251117
  Transmission Date: 20260117
  Serious: Yes (Hospitalization)
  Sender: MYLAN
  Company Number: EU-MYLANLABS-2025M1057059

PATIENT
  Age: 39 Year
  Sex: Male
  Weight: 130 kg

DRUGS (14)
  1. CLOZAPINE [Suspect]
     Active Substance: CLOZAPINE
     Indication: Psychotic disorder
     Dosage: 400 MILLIGRAM, TID (100 MG + 200 MG + 100 MG)
     Dates: start: 20241212, end: 202507
  2. CLOZAPINE [Suspect]
     Active Substance: CLOZAPINE
     Dosage: 200 MILLIGRAM
  3. LEVOMEPROMAZINE MALEATE [Concomitant]
     Active Substance: LEVOMEPROMAZINE MALEATE
     Indication: Psychotic disorder
     Dosage: 50 MILLIGRAM, TID (2X3 (2 DOSAGE FORMS 3 TIMES DAILY))
  4. Vi-siblin [Concomitant]
     Dosage: UNK
  5. BISOPROLOL [Concomitant]
     Active Substance: BISOPROLOL
     Dosage: 2.5 MILLIGRAM, BID (1 TABLET X 2, IN THE MORNING AND IN THE EVENING)
  6. Lorazepam orion [Concomitant]
     Dosage: UNK, TID (0.5 TABLET PLUS 1 TABLET PLUS 0.5 TABLET EVERY DAY)
  7. Multivita [Concomitant]
     Dosage: 1 DOSAGE FORM, QD (1 TABLET ONCE A DAY)
  8. OMEPRAZOLE [Concomitant]
     Active Substance: OMEPRAZOLE
     Dosage: 40 MILLIGRAM, QD
  9. SERTRALINE [Concomitant]
     Active Substance: SERTRALINE HYDROCHLORIDE
     Dosage: 200 MILLIGRAM, QD (2 TABLETS X1)
  10. FLUTICASONE FUROATE [Concomitant]
     Active Substance: FLUTICASONE FUROATE
     Dosage: UNK
  11. CETIRIZINE HYDROCHLORIDE [Concomitant]
     Active Substance: CETIRIZINE HYDROCHLORIDE
     Dosage: 10 MILLIGRAM, PRN 1 TABLET WHEN NEEDED (MAXIMUM DAILY DOSE IS 1 TABLET)
  12. SODIUM PICOSULFATE [Concomitant]
     Active Substance: SODIUM PICOSULFATE
     Dosage: UNK, PRN (5 TABLETS WHEN NEEDED (MAXIMUM DAILY DOSE IS 10 TABLETS)
  13. ACETAMINOPHEN [Concomitant]
     Active Substance: ACETAMINOPHEN
     Dosage: UNK, PRN (1-2 TABLETS WHEN NEEDED (MAXIMUM DAILY DOSE IS 6 TABLETS))
  14. ALBUTEROL [Concomitant]
     Active Substance: ALBUTEROL
     Dosage: UNK, PRN (1 INHALATION WHEN NEEDED (MAXIMUM DAILY DOSE IS 4 INHALATIONS)

REACTIONS (10)
  - Infection [Unknown]
  - Abdominal pain [Recovering/Resolving]
  - Decreased appetite [Not Recovered/Not Resolved]
  - Diarrhoea [Not Recovered/Not Resolved]
  - Pyrexia [Recovered/Resolved]
  - C-reactive protein increased [Not Recovered/Not Resolved]
  - Vomiting [Recovered/Resolved]
  - Hepatic steatosis [Unknown]
  - Neutrophil count increased [Not Recovered/Not Resolved]
  - Off label use [Not Recovered/Not Resolved]

NARRATIVE: CASE EVENT DATE: 20250101
